FAERS Safety Report 16813023 (Version 1)
Quarter: 2019Q3

REPORT INFORMATION
  Report Type: Other
  Country: US (occurrence: US)
  Receive Date: 20190916
  Receipt Date: 20190916
  Transmission Date: 20191005
  Serious: Yes (Hospitalization)
  Sender: FDA-Public Use
  Company Number: US-LEADIANT BIOSCIENCES INC-2018STPI000699

PATIENT
  Age: 82 Year
  Sex: Female

DRUGS (19)
  1. ZYLOPRIM [Concomitant]
     Active Substance: ALLOPURINOL
  2. CALCIUM + D3                       /00944201/ [Concomitant]
     Active Substance: CALCIUM CARBONATE\CHOLECALCIFEROL
  3. ETOPOSIDE. [Concomitant]
     Active Substance: ETOPOSIDE
  4. LIPITOR [Concomitant]
     Active Substance: ATORVASTATIN CALCIUM
  5. VALTREX [Concomitant]
     Active Substance: VALACYCLOVIR HYDROCHLORIDE
  6. LAXATIVE                           /00064401/ [Concomitant]
     Dosage: UNK
  7. LOPRESSOR [Concomitant]
     Active Substance: METOPROLOL TARTRATE
  8. ASPIRIN. [Concomitant]
     Active Substance: ASPIRIN
  9. MATULANE [Suspect]
     Active Substance: PROCARBAZINE HYDROCHLORIDE
     Indication: LYMPHOMA
     Dosage: 50 MG, QD
     Route: 048
     Dates: start: 20181009
  10. POTASSIUM BROMIDE [Concomitant]
     Active Substance: POTASSIUM BROMIDE
  11. ZOFRAN [Concomitant]
     Active Substance: ONDANSETRON HYDROCHLORIDE
  12. ALBUTEROL                          /00139501/ [Concomitant]
     Active Substance: ALBUTEROL
  13. CYCLOPHOSPHAMIDE. [Concomitant]
     Active Substance: CYCLOPHOSPHAMIDE
  14. PREDNISONE. [Concomitant]
     Active Substance: PREDNISONE
  15. WARFARIN [Concomitant]
     Active Substance: WARFARIN
  16. LASIX [Concomitant]
     Active Substance: FUROSEMIDE
  17. TOVIAZ [Concomitant]
     Active Substance: FESOTERODINE FUMARATE
  18. ZYRTEC [Concomitant]
     Active Substance: CETIRIZINE HYDROCHLORIDE
  19. MULTIVITAMIN                       /00097801/ [Concomitant]
     Active Substance: VITAMINS

REACTIONS (1)
  - Pneumonia [Not Recovered/Not Resolved]

NARRATIVE: CASE EVENT DATE: 20181103
